FAERS Safety Report 6402597-9 (Version None)
Quarter: 2009Q4

REPORT INFORMATION
  Report Type: 
  Country: None (occurrence: None)
  Receive Date: 20091009
  Receipt Date: 20090929
  Transmission Date: 20100525
  Serious: Yes (Hospitalization)
  Sender: FDA-Public Use
  Company Number: SPV1-2009-01928

PATIENT
  Age: 59 Year
  Sex: Male

DRUGS (2)
  1. ANAGRELIDE HCL [Suspect]
     Indication: ESSENTIAL THROMBOCYTHAEMIA
     Dosage: 0.5 MG, 2X/DAY:BID,
     Dates: start: 20070101, end: 20080101
  2. BLOKIUM /00422901/ (ATENOLOL) UNKNOWN [Concomitant]

REACTIONS (1)
  - PERIRENAL HAEMATOMA [None]
